FAERS Safety Report 23250808 (Version 1)
Quarter: 2023Q4

REPORT INFORMATION
  Report Type: Spontaneous
  Country: US (occurrence: None)
  Receive Date: 20231130
  Receipt Date: 20231130
  Transmission Date: 20240109
  Serious: Yes (Other)
  Sender: FDA-Public Use
  Company Number: None

PATIENT
  Age: 77 Year
  Sex: Female

DRUGS (1)
  1. ABALOPARATIDE [Suspect]
     Active Substance: ABALOPARATIDE
     Indication: Osteoporosis
     Dosage: FREQUENCY : DAILY;?
     Route: 058
     Dates: start: 20231101, end: 20231110

REACTIONS (5)
  - Myalgia [None]
  - Fatigue [None]
  - Nausea [None]
  - Vomiting [None]
  - Therapy cessation [None]

NARRATIVE: CASE EVENT DATE: 20231110
